FAERS Safety Report 17016905 (Version 1)
Quarter: 2019Q4

REPORT INFORMATION
  Report Type: Spontaneous
  Country: US (occurrence: US)
  Receive Date: 20191111
  Receipt Date: 20191111
  Transmission Date: 20200122
  Serious: Yes (Other)
  Sender: FDA-Public Use
  Company Number: US-PFIZER INC-2019480757

PATIENT
  Age: 39 Year
  Sex: Male

DRUGS (3)
  1. HEPARIN [Concomitant]
     Active Substance: HEPARIN SODIUM
     Indication: PROPHYLAXIS
     Route: 042
  2. SIROLIMUS. [Suspect]
     Active Substance: SIROLIMUS
     Indication: HEART TRANSPLANT
     Dosage: UNK
  3. ASPIRIN 81 [Concomitant]
     Active Substance: ASPIRIN
     Dosage: UNK UNK, DAILY

REACTIONS (3)
  - Off label use [Unknown]
  - Toxicity to various agents [Unknown]
  - Product use in unapproved indication [Unknown]
